FAERS Safety Report 4487042-5 (Version None)
Quarter: 2004Q3

REPORT INFORMATION
  Report Type: 
  Country: None (occurrence: None)
  Receive Date: 20040921
  Receipt Date: 20040331
  Transmission Date: 20050211
  Serious: Yes (Hospitalization)
  Sender: FDA-Public Use
  Company Number: 163-20785-04040016

PATIENT
  Age: 45 Year
  Sex: Female
  Weight: 101.1521 kg

DRUGS (9)
  1. THALOMID [Suspect]
     Indication: GLIOBLASTOMA MULTIFORME
     Dosage: 200 MG, QD, ORAL
     Route: 048
     Dates: start: 20040305
  2. IRINOTECAN HCL [Suspect]
     Indication: GLIOBLASTOMA MULTIFORME
     Dosage: 258 MG, 4WKS AND2WKS OFF, INTRAVENOUS
     Route: 042
     Dates: start: 20040305
  3. DECADRON [Concomitant]
  4. KEPPRA [Concomitant]
  5. ASPIRIN [Concomitant]
  6. PROTONIX [Concomitant]
  7. DIOVAN HCT         (CO-DIOVAN) [Concomitant]
  8. COUMADIN [Concomitant]
  9. LIPITOR [Concomitant]

REACTIONS (8)
  - CONSTIPATION [None]
  - DISEASE PROGRESSION [None]
  - FATIGUE [None]
  - LEUKOPENIA [None]
  - MUCOSAL INFLAMMATION [None]
  - NEUTROPENIA [None]
  - PNEUMONIA [None]
  - SOMNOLENCE [None]
